FAERS Safety Report 4403958-X (Version None)
Quarter: 2004Q3

REPORT INFORMATION
  Report Type: 
  Country: None (occurrence: None)
  Receive Date: 20040719
  Receipt Date: 20040705
  Transmission Date: 20050211
  Serious: Yes (Hospitalization)
  Sender: FDA-Public Use
  Company Number: 2004-FF-00354FF

PATIENT
  Age: 40 Year
  Sex: Female

DRUGS (2)
  1. VIRAMUNE [Suspect]
     Indication: HIV INFECTION
     Dosage: 2 IN 1 D PO
     Route: 048
  2. COMBIVIR [Concomitant]

REACTIONS (9)
  - ASCITES [None]
  - BLOOD IMMUNOGLOBULIN G DECREASED [None]
  - BLOOD IMMUNOGLOBULIN M DECREASED [None]
  - FLATULENCE [None]
  - HEPATIC CIRRHOSIS [None]
  - HEPATOSPLENOMEGALY [None]
  - INFLAMMATION [None]
  - PORTAL VEIN THROMBOSIS [None]
  - PROTEIN TOTAL INCREASED [None]
